FAERS Safety Report 6419509-4 (Version None)
Quarter: 2009Q4

REPORT INFORMATION
  Report Type: 
  Country: None (occurrence: None)
  Receive Date: 20091029
  Receipt Date: 20091020
  Transmission Date: 20100525
  Serious: Yes (Other)
  Sender: FDA-Public Use
  Company Number: US-JNJFOC-20091006739

PATIENT
  Age: 17 Year
  Sex: Male

DRUGS (5)
  1. RISPERIDONE [Suspect]
     Route: 065
  2. RISPERIDONE [Suspect]
     Indication: BIPOLAR DISORDER
     Dosage: 0.5 MG IN THE MORNING AND 1 MG IN THE NIGHT
     Route: 065
  3. LITHIUM CARBONATE [Interacting]
     Dosage: 300 MG IN THE MORNING AND 600 MG IN THE NIGHT
     Route: 065
  4. LITHIUM CARBONATE [Interacting]
     Route: 065
  5. LITHIUM CARBONATE [Interacting]
     Indication: IRRITABILITY
     Route: 065

REACTIONS (2)
  - DRUG INTERACTION [None]
  - ERECTION INCREASED [None]
